FAERS Safety Report 21917921 (Version 4)
Quarter: 2023Q4

REPORT INFORMATION
  Report Type: Spontaneous
  Country: US (occurrence: US)
  Receive Date: 20230127
  Receipt Date: 20231018
  Transmission Date: 20240109
  Serious: Yes (Other)
  Sender: FDA-Public Use
  Company Number: US-JNJFOC-20230149536

PATIENT
  Age: 5 Year
  Sex: Female

DRUGS (12)
  1. TYLENOL EXTRA STRENGTH [Suspect]
     Active Substance: ACETAMINOPHEN
     Indication: Back pain
     Dosage: THE PATIENTS MOTHER TOOK TYLENOL TABLETS 500 MG, BOTTLE OR PACKAGING SIZE (I.E., NUMBER OF PILLS):
     Route: 064
     Dates: start: 201509, end: 201604
  2. TYLENOL EXTRA STRENGTH [Suspect]
     Active Substance: ACETAMINOPHEN
     Indication: Pain
     Dosage: THE PATIENTS MOTHER TOOK TYLENOL TABLETS 500 MG, BOTTLE OR PACKAGING SIZE (I.E., NUMBER OF PILLS):
     Route: 064
     Dates: start: 201507, end: 201604
  3. TYLENOL EXTRA STRENGTH [Suspect]
     Active Substance: ACETAMINOPHEN
     Indication: Headache
  4. TYLENOL REGULAR STRENGTH [Suspect]
     Active Substance: ACETAMINOPHEN
     Indication: Pain
     Dosage: THE PATIENTS MOTHER TOOK TYLENOL TABLETS 325 MG, BOTTLE OR PACKAGING SIZE (I.E., NUMBER OF PILLS):
     Route: 064
     Dates: start: 201509, end: 201604
  5. TYLENOL REGULAR STRENGTH [Suspect]
     Active Substance: ACETAMINOPHEN
     Indication: Headache
  6. TYLENOL EXTRA STRENGTH [Suspect]
     Active Substance: ACETAMINOPHEN
     Indication: Pain
     Dosage: FIRST, SECOND AND THIRD TRIMESTER, 2-3 TIMES A DAY
     Route: 064
     Dates: start: 201509, end: 201604
  7. TYLENOL EXTRA STRENGTH [Suspect]
     Active Substance: ACETAMINOPHEN
     Indication: Headache
  8. ACETAMINOPHEN [Suspect]
     Active Substance: ACETAMINOPHEN
     Indication: Pain
     Dosage: FROM AN UNSPECIFIED DATE IN SEP-2015 TO PRESENT, THE PATIENTS MOTHER TOOK ACETAMINOPHEN FOR PAIN AN
     Route: 064
     Dates: start: 201509
  9. ACETAMINOPHEN [Suspect]
     Active Substance: ACETAMINOPHEN
     Indication: Headache
  10. ACETAMINOPHEN [Suspect]
     Active Substance: ACETAMINOPHEN
     Indication: Back pain
     Dosage: FIRST, SECOND AND THIRD TRIMESTER, 2 - 3 TIMES A WEEK
     Route: 064
     Dates: start: 201507, end: 201604
  11. ACETAMINOPHEN [Suspect]
     Active Substance: ACETAMINOPHEN
     Indication: Pain
     Dosage: FIRST, SECOND AND THIRD TRIMESTER, 2 - 3 TIMES A WEEK
     Route: 064
     Dates: start: 201507, end: 201604
  12. ACETAMINOPHEN [Suspect]
     Active Substance: ACETAMINOPHEN
     Indication: Headache

REACTIONS (2)
  - Autism spectrum disorder [Unknown]
  - Foetal exposure during pregnancy [Unknown]

NARRATIVE: CASE EVENT DATE: 20210902
